FAERS Safety Report 5243902-9 (Version None)
Quarter: 2007Q1

REPORT INFORMATION
  Report Type: 
  Country: None (occurrence: None)
  Receive Date: 20070222
  Receipt Date: 20070216
  Transmission Date: 20070707
  Serious: Yes (Life-Threatening)
  Sender: FDA-Public Use
  Company Number: PHRM2006FR02746

PATIENT
  Age: 77 Year
  Sex: Female

DRUGS (1)
  1. GLEEVEC [Suspect]
     Indication: CHRONIC MYELOID LEUKAEMIA
     Dosage: 400 MG, QD
     Route: 048
     Dates: start: 20040101

REACTIONS (3)
  - LIP AND/OR ORAL CAVITY CANCER [None]
  - SQUAMOUS CELL CARCINOMA [None]
  - STOMATITIS [None]
